FAERS Safety Report 16047149 (Version 3)
Quarter: 2019Q2

REPORT INFORMATION
  Report Type: Spontaneous
  Country: US (occurrence: US)
  Receive Date: 20190307
  Receipt Date: 20190520
  Transmission Date: 20190711
  Serious: No
  Sender: FDA-Public Use
  Company Number: US-ELI_LILLY_AND_COMPANY-US201903000220

PATIENT
  Age: 53 Year
  Sex: Male

DRUGS (3)
  1. TALTZ [Suspect]
     Active Substance: IXEKIZUMAB
     Dosage: 80 MG, UNKNOWN
     Route: 058
  2. TALTZ [Suspect]
     Active Substance: IXEKIZUMAB
     Indication: PSORIASIS
     Dosage: 80 MG, EVERY 4 WEEKS
     Route: 058
     Dates: start: 201705, end: 201811
  3. TALTZ [Suspect]
     Active Substance: IXEKIZUMAB
     Dosage: 160 MG, BASELINE DOSE
     Route: 058
     Dates: start: 201904

REACTIONS (2)
  - Hepatic fibrosis [Recovering/Resolving]
  - Chronic hepatitis [Recovering/Resolving]
